FAERS Safety Report 14789739 (Version 5)
Quarter: 2019Q4

REPORT INFORMATION
  Report Type: Spontaneous
  Country: US (occurrence: US)
  Receive Date: 20180423
  Receipt Date: 20191230
  Transmission Date: 20200122
  Serious: No
  Sender: FDA-Public Use
  Company Number: US-PFIZER INC-2018108572

PATIENT
  Age: 69 Year
  Sex: Female

DRUGS (10)
  1. MULTIPLE VITAMINS WITH MINERALS [Concomitant]
     Active Substance: MINERALS\VITAMINS
     Dosage: UNK
     Route: 048
  2. VITAMIN C [Concomitant]
     Active Substance: ASCORBIC ACID
     Dosage: 100 MG, UNK (TAKE 1 TABLET BY MOUTH)
     Route: 048
  3. ZESTRIL [Concomitant]
     Active Substance: LISINOPRIL
     Dosage: 5 MG, DAILY
     Route: 048
  4. XELJANZ XR [Suspect]
     Active Substance: TOFACITINIB CITRATE
     Indication: ALOPECIA
     Dosage: 11 MG, 1X/DAY
     Route: 048
     Dates: start: 201709
  5. PRINIVIL [Concomitant]
     Active Substance: LISINOPRIL
     Dosage: 5 MG, DAILY
     Route: 048
  6. XELJANZ XR [Suspect]
     Active Substance: TOFACITINIB CITRATE
     Indication: ALOPECIA AREATA
     Dosage: 11 MG, UNK (X30)
     Dates: start: 201712
  7. ARMOUR THYROID [Concomitant]
     Active Substance: THYROID, PORCINE
     Dosage: UNK
     Route: 048
  8. XELJANZ XR [Suspect]
     Active Substance: TOFACITINIB CITRATE
     Dosage: 11 MG, ALTERNATE DAY
     Dates: start: 20180515
  9. BIOTIN/CALCIUM PHOSPHATE DIBASIC [Concomitant]
     Dosage: 1 MG, UNK
  10. GARLIC. [Concomitant]
     Active Substance: GARLIC
     Dosage: 1 DF, UNK
     Route: 048

REACTIONS (6)
  - Muscle spasms [Unknown]
  - Drug effective for unapproved indication [Unknown]
  - Breast pain [Unknown]
  - Off label use [Unknown]
  - Product use in unapproved indication [Unknown]
  - Hair growth abnormal [Unknown]

NARRATIVE: CASE EVENT DATE: 20171226
